FAERS Safety Report 22390544 (Version 2)
Quarter: 2024Q1

REPORT INFORMATION
  Report Type: Spontaneous
  Country: US (occurrence: US)
  Receive Date: 20230531
  Receipt Date: 20240228
  Transmission Date: 20240409
  Serious: Yes (Hospitalization)
  Sender: FDA-Public Use
  Company Number: US-ELI_LILLY_AND_COMPANY-US202305015403

PATIENT
  Age: 26 Year
  Sex: Female

DRUGS (1)
  1. MOUNJARO [Suspect]
     Active Substance: TIRZEPATIDE
     Indication: Product used for unknown indication
     Dosage: UNK UNK, UNKNOWN
     Route: 065

REACTIONS (8)
  - COVID-19 [Unknown]
  - Malnutrition [Unknown]
  - Eye swelling [Unknown]
  - Blood glucose decreased [Unknown]
  - Dizziness [Unknown]
  - Appendicitis perforated [Unknown]
  - Gastrointestinal infection [Unknown]
  - Blood pressure decreased [Unknown]
